FAERS Safety Report 9846934 (Version 2)
Quarter: 2014Q1

REPORT INFORMATION
  Report Type: Spontaneous
  Country: US (occurrence: US)
  Receive Date: 20140127
  Receipt Date: 20140127
  Transmission Date: 20141002
  Serious: Yes (Disabling)
  Sender: FDA-Public Use
  Company Number: US-GE HEALTHCARE MEDICAL DIAGNOSTICS-OSCN-PR-0905S-0254

PATIENT
  Age: 52 Year
  Sex: Male

DRUGS (9)
  1. OMNISCAN [Suspect]
     Indication: PERIPHERAL ARTERIAL OCCLUSIVE DISEASE
     Route: 042
     Dates: start: 20040330, end: 20040330
  2. OMNISCAN [Suspect]
     Indication: SKIN ULCER
     Route: 042
     Dates: start: 20050113, end: 20050113
  3. OMNISCAN [Suspect]
     Indication: PAIN IN EXTREMITY
     Route: 042
     Dates: start: 20050204, end: 20050204
  4. OMNISCAN [Suspect]
     Indication: MUSCULAR WEAKNESS
  5. OMNISCAN [Suspect]
     Indication: SUPERIOR VENA CAVA SYNDROME
  6. PROHANCE [Suspect]
     Indication: SKIN ULCER
     Route: 042
     Dates: start: 20040330, end: 20040330
  7. PROHANCE [Suspect]
     Indication: PERIPHERAL ARTERIAL OCCLUSIVE DISEASE
  8. MAGNEVIST [Suspect]
     Indication: TRANSPLANT EVALUATION
     Route: 042
     Dates: start: 20030909, end: 20030909
  9. MAGNEVIST [Suspect]
     Indication: DIABETIC VASCULAR DISORDER

REACTIONS (1)
  - Nephrogenic systemic fibrosis [Not Recovered/Not Resolved]
